FAERS Safety Report 4652253-2 (Version None)
Quarter: 2005Q2

REPORT INFORMATION
  Report Type: 
  Country: None (occurrence: None)
  Receive Date: 20050502
  Receipt Date: 20050414
  Transmission Date: 20051028
  Serious: Yes (Congenital Anomaly, Other)
  Sender: FDA-Public Use
  Company Number: 2005S1002462

PATIENT

DRUGS (1)
  1. TETRACYCLINE HCL [Suspect]
     Dosage: PO
     Route: 048

REACTIONS (4)
  - DRUG EXPOSURE DURING PREGNANCY [None]
  - NEONATAL DISORDER [None]
  - NYSTAGMUS [None]
  - TOOTH DISCOLOURATION [None]
